FAERS Safety Report 11690159 (Version 1)
Quarter: 2015Q4

REPORT INFORMATION
  Report Type: Spontaneous
  Country: FR (occurrence: FR)
  Receive Date: 20151102
  Receipt Date: 20151102
  Transmission Date: 20160304
  Serious: Yes (Life-Threatening, Hospitalization)
  Sender: FDA-Public Use
  Company Number: FR-SA-2015SA173070

PATIENT
  Age: 43 Year
  Sex: Female

DRUGS (3)
  1. MYAMBUTOL [Concomitant]
     Active Substance: ETHAMBUTOL HYDROCHLORIDE
     Dates: start: 20091030
  2. RIFADINE [Suspect]
     Active Substance: RIFAMPIN
     Indication: PERITONEAL TUBERCULOSIS
     Route: 065
     Dates: start: 20091030, end: 20100126
  3. RIMIFON [Suspect]
     Active Substance: ISONIAZID
     Indication: PERITONEAL TUBERCULOSIS
     Dosage: 3-4 MG/KG
     Route: 065
     Dates: start: 20091030, end: 20100111

REACTIONS (2)
  - Liver transplant [Recovered/Resolved with Sequelae]
  - Hepatic failure [Recovered/Resolved with Sequelae]

NARRATIVE: CASE EVENT DATE: 201002
